FAERS Safety Report 13918627 (Version 3)
Quarter: 2017Q3

REPORT INFORMATION
  Report Type: Spontaneous
  Country: NZ (occurrence: NZ)
  Receive Date: 20170829
  Receipt Date: 20170927
  Transmission Date: 20171127
  Serious: Yes (Other)
  Sender: FDA-Public Use
  Company Number: NZ-BEH-2017083093

PATIENT
  Age: 15 Day
  Sex: Female
  Weight: 3.2 kg

DRUGS (7)
  1. PRIVIGEN [Suspect]
     Active Substance: HUMAN IMMUNOGLOBULIN G
     Indication: CARDIOGENIC SHOCK
     Dosage: 0.65 ML, SINGLE
     Route: 042
     Dates: start: 20170821, end: 20170821
  2. MILRINONE [Concomitant]
     Active Substance: MILRINONE
     Indication: LEFT VENTRICULAR FAILURE
     Dosage: 0.72 MG, QD
     Route: 042
     Dates: start: 20170821
  3. PRIVIGEN [Suspect]
     Active Substance: HUMAN IMMUNOGLOBULIN G
     Indication: MYOCARDITIS
  4. HEPARIN [Concomitant]
     Active Substance: HEPARIN SODIUM
     Indication: CATHETER MANAGEMENT
     Dosage: 1171.2 IU, QD
     Route: 042
     Dates: start: 20170821
  5. DOBUTAMINE [Concomitant]
     Active Substance: DOBUTAMINE\DOBUTAMINE HYDROCHLORIDE
     Indication: LEFT VENTRICULAR FAILURE
     Dosage: 28 MG, QD
     Route: 042
     Dates: start: 20170819
  6. MORPHINE [Concomitant]
     Active Substance: MORPHINE
     Indication: SEDATION
     Dosage: 1.472 MG, QD
     Route: 042
     Dates: start: 20170821
  7. NOREPINEPHRINE. [Concomitant]
     Active Substance: NOREPINEPHRINE
     Indication: LEFT VENTRICULAR FAILURE
     Dosage: 0.032 ?G, QD
     Route: 042
     Dates: start: 20170821

REACTIONS (3)
  - Neonatal tachycardia [Recovered/Resolved]
  - Agitation neonatal [Recovered/Resolved]
  - Body temperature increased [Recovered/Resolved]

NARRATIVE: CASE EVENT DATE: 20170821
